FAERS Safety Report 8798216 (Version 1)
Quarter: 2012Q4

REPORT INFORMATION
  Report Type: 
  Country: US (occurrence: US)
  Receive Date: 20120920
  Receipt Date: 20120920
  Transmission Date: 20130627
  Serious: No
  Sender: FDA-Public Use
  Company Number: US-009507513-1209USA006559

PATIENT
  Age: 59 Year
  Sex: Male
  Weight: 76.19 kg

DRUGS (8)
  1. VICTRELIS [Suspect]
     Indication: HEPATITIS C
     Dosage: 800 mg, tid
  2. TOPROL XL TABLETS [Concomitant]
  3. PEGASYS [Concomitant]
  4. REBETOL [Concomitant]
  5. EPOGEN [Concomitant]
  6. ASPIRIN [Concomitant]
  7. ENSURE [Concomitant]
  8. VITAMINS (UNSPECIFIED) [Concomitant]

REACTIONS (1)
  - Anaemia [Not Recovered/Not Resolved]
